FAERS Safety Report 10235171 (Version 1)
Quarter: 2014Q2

REPORT INFORMATION
  Report Type: Spontaneous
  Country: FR (occurrence: FR)
  Receive Date: 20140613
  Receipt Date: 20140613
  Transmission Date: 20141212
  Serious: Yes (Hospitalization)
  Sender: FDA-Public Use
  Company Number: FR-SA-2014SA077534

PATIENT
  Age: 73 Year
  Sex: Male

DRUGS (1)
  1. BCG (CONNAUGHT) IT [Suspect]
     Indication: BLADDER CANCER
     Route: 043
     Dates: start: 201311, end: 20140526

REACTIONS (3)
  - Altered state of consciousness [Recovered/Resolved]
  - Pyrexia [Recovered/Resolved]
  - Chills [Recovered/Resolved]
